FAERS Safety Report 14498062 (Version 1)
Quarter: 2018Q1

REPORT INFORMATION
  Report Type: Spontaneous
  Country: US (occurrence: US)
  Receive Date: 20180206
  Receipt Date: 20180206
  Transmission Date: 20180509
  Serious: Yes (Other)
  Sender: FDA-Public Use
  Company Number: None

PATIENT

DRUGS (2)
  1. CEFAZOLIN [Suspect]
     Active Substance: CEFAZOLIN
  2. AMPICILLIN [Suspect]
     Active Substance: AMPICILLIN

REACTIONS (3)
  - Norovirus test positive [None]
  - Clostridium test positive [None]
  - Therapy cessation [None]
